FAERS Safety Report 18965634 (Version 1)
Quarter: 2021Q1

REPORT INFORMATION
  Report Type: Report from Study
  Country: None (occurrence: BR)
  Receive Date: 20210304
  Receipt Date: 20210304
  Transmission Date: 20210420
  Serious: Yes (Other)
  Sender: FDA-Public Use
  Company Number: BR-ABBVIE-21K-020-3797973-00

PATIENT
  Age: 63 Year
  Sex: Female

DRUGS (1)
  1. HUMIRA [Suspect]
     Active Substance: ADALIMUMAB
     Indication: ANKYLOSING SPONDYLITIS
     Dosage: UNSPECIFIED DOSE
     Route: 058
     Dates: start: 20200709

REACTIONS (1)
  - Hypokinesia [Unknown]

NARRATIVE: CASE EVENT DATE: 20201221
